FAERS Safety Report 15900867 (Version 3)
Quarter: 2019Q2

REPORT INFORMATION
  Report Type: Report from Study
  Country: US (occurrence: US)
  Receive Date: 20190201
  Receipt Date: 20190620
  Transmission Date: 20190711
  Serious: Yes (Hospitalization, Other)
  Sender: FDA-Public Use
  Company Number: US-GILEAD-2019-0388043

PATIENT
  Age: 39 Year
  Sex: Female

DRUGS (1)
  1. AZTREONAM LYSINE [Suspect]
     Active Substance: AZTREONAM LYSINE
     Indication: CYSTIC FIBROSIS
     Dosage: 75 MG, UNK (28 DAYS ON THEN 28 DAYS OFF)
     Route: 055
     Dates: start: 20150505

REACTIONS (4)
  - Intentional dose omission [Unknown]
  - Cystic fibrosis [Not Recovered/Not Resolved]
  - Condition aggravated [Not Recovered/Not Resolved]
  - Sinus operation [Unknown]

NARRATIVE: CASE EVENT DATE: 20190225
